FAERS Safety Report 19498453 (Version 1)
Quarter: 2021Q3

REPORT INFORMATION
  Report Type: Report from Study
  Country: FR (occurrence: FR)
  Receive Date: 20210706
  Receipt Date: 20210706
  Transmission Date: 20211014
  Serious: Yes (Other)
  Sender: FDA-Public Use
  Company Number: FR-TAKEDA-2021TUS038783

PATIENT
  Age: 61 Year
  Sex: Male

DRUGS (8)
  1. MAG 2 [Concomitant]
     Active Substance: MAGNESIUM
     Indication: SUPPLEMENTATION THERAPY
     Dosage: 100 MILLIGRAM, TID
     Route: 048
     Dates: start: 20180921
  2. TEDUGLUTIDE [Suspect]
     Active Substance: TEDUGLUTIDE
     Indication: SHORT-BOWEL SYNDROME
     Dosage: 2.8 MILLIGRAM (0.05 MG/KG), 7 DOSES PER WEEK
     Route: 065
     Dates: start: 20160629
  3. PHOSPHONEUROS [Concomitant]
     Active Substance: CALCIUM PHOSPHATE, DIBASIC, ANHYDROUS\MAGNESIUM GLYCEROPHOSPHATE\PHOSPHORIC ACID\SODIUM PHOSPHATE, DIBASIC
     Indication: SUPPLEMENTATION THERAPY
     Dosage: 50 GTT DROPS, BID
     Route: 048
     Dates: start: 20190423
  4. TEDUGLUTIDE [Suspect]
     Active Substance: TEDUGLUTIDE
     Indication: SHORT-BOWEL SYNDROME
     Dosage: 2.8 MILLIGRAM (0.05 MG/KG), 7 DOSES PER WEEK
     Route: 065
     Dates: start: 20160629
  5. TEDUGLUTIDE [Suspect]
     Active Substance: TEDUGLUTIDE
     Indication: SHORT-BOWEL SYNDROME
     Dosage: 2.8 MILLIGRAM (0.05 MG/KG), 7 DOSES PER WEEK
     Route: 065
     Dates: start: 20160629
  6. BICARBONATE DE SODIUM AGUETTANT [Concomitant]
     Active Substance: SODIUM BICARBONATE
     Indication: SUPPLEMENTATION THERAPY
     Dosage: 1 GRAM, TID
     Route: 048
     Dates: start: 20180921
  7. CREON [Concomitant]
     Active Substance: PANCRELIPASE AMYLASE\PANCRELIPASE LIPASE\PANCRELIPASE PROTEASE
     Indication: CROHN^S DISEASE
     Dosage: 2500 INTERNATIONAL UNIT, TID
     Route: 048
     Dates: start: 20190423
  8. TEDUGLUTIDE [Suspect]
     Active Substance: TEDUGLUTIDE
     Indication: SHORT-BOWEL SYNDROME
     Dosage: 2.8 MILLIGRAM (0.05 MG/KG), 7 DOSES PER WEEK
     Route: 065
     Dates: start: 20160629

REACTIONS (1)
  - Device related thrombosis [Recovered/Resolved]

NARRATIVE: CASE EVENT DATE: 20170220
